FAERS Safety Report 6098186-9 (Version None)
Quarter: 2009Q1

REPORT INFORMATION
  Report Type: 
  Country: None (occurrence: None)
  Receive Date: 20090227
  Receipt Date: 20090218
  Transmission Date: 20090719
  Serious: Yes (Other)
  Sender: FDA-Public Use
  Company Number: GB-BAUSCH-2009BL000705

PATIENT

DRUGS (4)
  1. DICLOFENAC [Suspect]
     Indication: DRUG USE FOR UNKNOWN INDICATION
  2. PREDNISOLONE [Suspect]
     Indication: DRUG USE FOR UNKNOWN INDICATION
  3. WARFARIN [Suspect]
     Indication: DRUG USE FOR UNKNOWN INDICATION
  4. SIMVASTATIN [Suspect]
     Indication: DRUG USE FOR UNKNOWN INDICATION

REACTIONS (3)
  - CONTUSION [None]
  - FALL [None]
  - INTERNATIONAL NORMALISED RATIO INCREASED [None]
